FAERS Safety Report 6669553-7 (Version None)
Quarter: 2010Q2

REPORT INFORMATION
  Report Type: 
  Country: None (occurrence: None)
  Receive Date: 20100406
  Receipt Date: 20100329
  Transmission Date: 20101027
  Serious: Yes (Other)
  Sender: FDA-Public Use
  Company Number: JP-PFIZER INC-2010040954

PATIENT

DRUGS (2)
  1. AZULFIDINE [Suspect]
     Dosage: UNK
     Route: 048
  2. ONE-ALPHA [Concomitant]
     Dosage: UNK
     Route: 048

REACTIONS (1)
  - DEEP VEIN THROMBOSIS [None]
